FAERS Safety Report 23272531 (Version 1)
Quarter: 2023Q4

REPORT INFORMATION
  Report Type: Spontaneous
  Country: KR (occurrence: KR)
  Receive Date: 20231207
  Receipt Date: 20231207
  Transmission Date: 20240110
  Serious: Yes (Other)
  Sender: FDA-Public Use
  Company Number: KR-009507513-2311KOR010907

PATIENT
  Age: 66 Year
  Sex: Male

DRUGS (3)
  1. KEYTRUDA [Suspect]
     Active Substance: PEMBROLIZUMAB
     Dosage: 200 MILLIGRAM, QD DOSAGE FORM: VIAL
     Route: 042
     Dates: start: 20221108, end: 20221108
  2. PACLITAXEL [Suspect]
     Active Substance: PACLITAXEL
     Dosage: 210 MILLIGRAM, QD, DOSAGE FORM: VIAL
     Route: 042
     Dates: start: 20221108, end: 20221108
  3. CARBOPLATIN [Suspect]
     Active Substance: CARBOPLATIN
     Dosage: 247 MILLIGRAM, QD, DOSAGE FORM: VIAL
     Route: 042
     Dates: start: 20221108, end: 20221108

REACTIONS (1)
  - Leukopenia [Recovering/Resolving]

NARRATIVE: CASE EVENT DATE: 20221115
